FAERS Safety Report 9382036 (Version 1)
Quarter: 2013Q3

REPORT INFORMATION
  Report Type: Spontaneous
  Country: DK (occurrence: FR)
  Receive Date: 20130703
  Receipt Date: 20130703
  Transmission Date: 20140515
  Serious: Yes (Death)
  Sender: FDA-Public Use
  Company Number: FR-FRI-1000046394

PATIENT
  Age: 75 Year
  Sex: Male

DRUGS (11)
  1. ESCITALOPRAM [Suspect]
     Dosage: 2 DF
     Route: 048
     Dates: start: 20130227
  2. LOVENOX [Suspect]
     Dosage: 20,000 UI ANTI-XA/2 ML
     Route: 058
     Dates: start: 20130226, end: 20130304
  3. COUMADINE [Suspect]
     Dosage: 4 DF
     Route: 048
     Dates: start: 20130227, end: 20130303
  4. COUMADINE [Suspect]
     Dosage: 4.5 DF
     Route: 048
     Dates: start: 20130304, end: 20130304
  5. DAFALGAN [Suspect]
     Dosage: 6 DF
     Route: 048
     Dates: start: 20130227
  6. TOPALGIC [Suspect]
     Dosage: 2 DF
     Route: 048
     Dates: start: 20130227
  7. LASILIX RETARD [Concomitant]
     Dosage: 1 DF
     Route: 048
  8. INEGY [Concomitant]
     Dosage: 10 MG/ 20 MG
     Route: 048
  9. JANUMET [Concomitant]
     Dosage: 50 MG/1000 MG DAILY
     Route: 048
  10. SPIRIVA [Concomitant]
     Dosage: 18 MCG
     Route: 055
  11. PARIET [Concomitant]
     Dosage: 1 DF
     Route: 048

REACTIONS (1)
  - Intra-abdominal haematoma [Fatal]
